FAERS Safety Report 6057450-X (Version None)
Quarter: 2009Q1

REPORT INFORMATION
  Report Type: 
  Country: None (occurrence: None)
  Receive Date: 20090126
  Receipt Date: 20090126
  Transmission Date: 20090719
  Serious: Yes (Hospitalization, Other)
  Sender: FDA-Public Use
  Company Number: None

PATIENT
  Age: 45 Year
  Sex: Male
  Weight: 81.6475 kg

DRUGS (1)
  1. BETADINE [Suspect]
     Indication: SURGERY
     Dosage: APPLY AS NEEDED SINGLE USE TOP
     Route: 061
     Dates: start: 20081211, end: 20081211

REACTIONS (4)
  - APPLICATION SITE REACTION [None]
  - BURNS SECOND DEGREE [None]
  - BURNS THIRD DEGREE [None]
  - IMPAIRED HEALING [None]
